FAERS Safety Report 15010299 (Version 1)
Quarter: 2018Q2

REPORT INFORMATION
  Report Type: Spontaneous
  Country: US (occurrence: US)
  Receive Date: 20180614
  Receipt Date: 20180614
  Transmission Date: 20180711
  Serious: No
  Sender: FDA-Public Use
  Company Number: US-BIOGEN-2017BI00454302

PATIENT
  Age: 44 Year
  Sex: Female

DRUGS (2)
  1. TECFIDERA [Suspect]
     Active Substance: DIMETHYL FUMARATE
     Indication: MULTIPLE SCLEROSIS
     Dosage: STARTER DOSE
     Route: 048
     Dates: start: 20170817
  2. TECFIDERA [Suspect]
     Active Substance: DIMETHYL FUMARATE
     Route: 065

REACTIONS (7)
  - Vomiting [Not Recovered/Not Resolved]
  - Diarrhoea [Not Recovered/Not Resolved]
  - Paranasal sinus hypersecretion [Unknown]
  - Nausea [Not Recovered/Not Resolved]
  - Malaise [Unknown]
  - Underdose [Unknown]
  - Drug intolerance [Unknown]

NARRATIVE: CASE EVENT DATE: 201708
